FAERS Safety Report 8521641 (Version 3)
Quarter: 2012Q4

REPORT INFORMATION
  Report Type: 
  Country: US (occurrence: US)
  Receive Date: 20120419
  Receipt Date: 20121019
  Transmission Date: 20130627
  Serious: Yes (Other)
  Sender: FDA-Public Use
  Company Number: US-BRISTOL-MYERS SQUIBB COMPANY-16398836

PATIENT
  Age: 59 Year
  Sex: Female

DRUGS (1)
  1. YERVOY [Suspect]
     Indication: MALIGNANT MELANOMA
     Dosage: 14Dec11,19Dec11,1A71338,999 mg 9Jan12,1A71338 993mg
     Route: 042
     Dates: start: 20111128, end: 20120109

REACTIONS (4)
  - Hypothyroidism [Recovered/Resolved]
  - Cushing^s syndrome [Unknown]
  - Hypophysitis [Unknown]
  - Adrenal insufficiency [Unknown]
